FAERS Safety Report 6759509-8 (Version None)
Quarter: 2010Q2

REPORT INFORMATION
  Report Type: 
  Country: None (occurrence: None)
  Receive Date: 20100603
  Receipt Date: 20100520
  Transmission Date: 20101027
  Serious: Yes (Other)
  Sender: FDA-Public Use
  Company Number: TPA2010A03267

PATIENT
  Age: 62 Year
  Sex: Male

DRUGS (2)
  1. ADENURIC (FEBUXOSTAT) [Suspect]
     Indication: DRUG USE FOR UNKNOWN INDICATION
     Dosage: 80, 1 IN 1 D, ORAL
     Route: 048
     Dates: start: 20100401, end: 20100520
  2. CYCLOSPORINE [Suspect]
     Indication: THROMBOCYTOPENIA
     Dates: end: 20100520

REACTIONS (4)
  - DRUG INTERACTION [None]
  - GAMMA-GLUTAMYLTRANSFERASE INCREASED [None]
  - PLATELET COUNT DECREASED [None]
  - RENAL IMPAIRMENT [None]
